FAERS Safety Report 5159019-8 (Version None)
Quarter: 2006Q4

REPORT INFORMATION
  Report Type: 
  Country: None (occurrence: None)
  Receive Date: 20061117
  Receipt Date: 20061114
  Transmission Date: 20070319
  Serious: Yes (Other)
  Sender: FDA-Public Use
  Company Number: SPVI-2006-01451

PATIENT
  Age: 9 Year
  Sex: Female

DRUGS (4)
  1. DAYTRANA [Suspect]
     Indication: ATTENTION DEFICIT/HYPERACTIVITY DISORDER
     Dosage: 20 MG, TRANSDERMAL; 10 MG TRANSDERMAL
     Route: 062
     Dates: start: 20060913, end: 20061002
  2. DAYTRANA [Suspect]
     Indication: ATTENTION DEFICIT/HYPERACTIVITY DISORDER
     Dosage: 20 MG, TRANSDERMAL; 10 MG TRANSDERMAL
     Route: 062
     Dates: start: 20061003, end: 20061017
  3. PROZAC [Concomitant]
  4. ADDERALL 10 [Concomitant]

REACTIONS (3)
  - APPLICATION SITE VESICLES [None]
  - RASH ERYTHEMATOUS [None]
  - URTICARIA GENERALISED [None]
